FAERS Safety Report 5494071-1 (Version None)
Quarter: 2007Q4

REPORT INFORMATION
  Report Type: 
  Country: None (occurrence: None)
  Receive Date: 20071022
  Receipt Date: 20071008
  Transmission Date: 20080405
  Serious: Yes (Death)
  Sender: FDA-Public Use
  Company Number: 2004071430

PATIENT
  Age: 4 Month
  Sex: Female

DRUGS (2)
  1. PSEUDOEPHEDRINE HCL [Suspect]
     Indication: CHILD ABUSE
     Dosage: ORAL
     Route: 048
  2. AMOXICILLIN [Suspect]
     Indication: CHILD ABUSE
     Dosage: ORAL
     Route: 048

REACTIONS (6)
  - ASPIRATION [None]
  - CARDIAC ARREST [None]
  - CHILD ABUSE [None]
  - DRUG LEVEL INCREASED [None]
  - RESPIRATORY ARREST [None]
  - VOMITING [None]
